FAERS Safety Report 9307443 (Version 1)
Quarter: 2013Q2

REPORT INFORMATION
  Report Type: Spontaneous
  Country: CN (occurrence: CN)
  Receive Date: 20130524
  Receipt Date: 20130524
  Transmission Date: 20140414
  Serious: Yes (Hospitalization)
  Sender: FDA-Public Use
  Company Number: CN-JNJFOC-20130510362

PATIENT
  Age: 28 Year
  Sex: Female

DRUGS (3)
  1. RISPERDAL [Suspect]
     Indication: MANIA
     Route: 048
  2. RISPERDAL [Suspect]
     Indication: MANIA
     Route: 048
     Dates: start: 20120806, end: 20121110
  3. LITHIUM CARBONATE [Suspect]
     Indication: MANIA
     Route: 048

REACTIONS (1)
  - Mental disorder [Recovering/Resolving]
